FAERS Safety Report 14521584 (Version 3)
Quarter: 2018Q3

REPORT INFORMATION
  Report Type: Report from Study
  Country: DE (occurrence: DE)
  Receive Date: 20180212
  Receipt Date: 20180804
  Transmission Date: 20181010
  Serious: Yes (Hospitalization)
  Sender: FDA-Public Use
  Company Number: DE-TEVA-2018-DE-855485

PATIENT
  Age: 72 Year
  Sex: Female

DRUGS (3)
  1. CEFACLOR. [Suspect]
     Active Substance: CEFACLOR
     Indication: PRODUCT USED FOR UNKNOWN INDICATION
     Route: 065
  2. TOCILIZUMAB. [Suspect]
     Active Substance: TOCILIZUMAB
     Route: 058
     Dates: start: 201708
  3. TOCILIZUMAB. [Suspect]
     Active Substance: TOCILIZUMAB
     Indication: RHEUMATOID ARTHRITIS
     Route: 058
     Dates: start: 20150601

REACTIONS (6)
  - Bacterial infection [Recovered/Resolved]
  - Hantaviral infection [Recovered/Resolved]
  - Liver function test abnormal [Recovered/Resolved]
  - Blood triglycerides [Not Recovered/Not Resolved]
  - White blood cell count increased [Recovered/Resolved]
  - Platelet count increased [Recovered/Resolved]

NARRATIVE: CASE EVENT DATE: 201707
